FAERS Safety Report 18055766 (Version 1)
Quarter: 2020Q3

REPORT INFORMATION
  Report Type: Spontaneous
  Country: NO (occurrence: NO)
  Receive Date: 20200722
  Receipt Date: 20200722
  Transmission Date: 20201103
  Serious: Yes (Hospitalization)
  Sender: FDA-Public Use
  Company Number: NVSC2020NO198539

PATIENT
  Age: 41 Year
  Sex: Male

DRUGS (4)
  1. HYRIMOZ [Suspect]
     Active Substance: ADALIMUMAB-ADAZ
     Indication: RHEUMATOID ARTHRITIS
     Dosage: 40 MG, Q2W
     Route: 058
     Dates: start: 202003, end: 20200618
  2. METEX [Concomitant]
     Indication: RHEUMATOID ARTHRITIS
     Dosage: 25 MG, QW
     Route: 058
     Dates: end: 20200420
  3. METEX [Concomitant]
     Dosage: 25 MG, QW
     Route: 058
     Dates: start: 20200507
  4. SAROTEX [Concomitant]
     Active Substance: AMITRIPTYLINE HYDROCHLORIDE
     Indication: PAIN
     Dosage: 25 MG, QD
     Route: 048
     Dates: start: 20200602

REACTIONS (4)
  - Product substitution issue [Recovering/Resolving]
  - Tachyphrenia [Recovering/Resolving]
  - Insomnia [Recovering/Resolving]
  - Depression [Recovering/Resolving]

NARRATIVE: CASE EVENT DATE: 202003
